FAERS Safety Report 8024109-9 (Version None)
Quarter: 2012Q1

REPORT INFORMATION
  Report Type: 
  Country: None (occurrence: None)
  Receive Date: 20120103
  Receipt Date: 20111220
  Transmission Date: 20120608
  Serious: Yes (Life-Threatening, Hospitalization, Other)
  Sender: FDA-Public Use
  Company Number: 2011MA008216

PATIENT
  Sex: Male
  Weight: 90.7194 kg

DRUGS (48)
  1. COLCHICINE [Concomitant]
  2. NPH INSULIN [Concomitant]
  3. DILTIAZEM HCL [Concomitant]
  4. EPOGEN [Concomitant]
  5. FUROSEMIDE [Concomitant]
  6. GLIPIZIDE [Concomitant]
  7. DYAZIDE [Concomitant]
  8. ZOFRAN [Concomitant]
  9. AMITRIPTYLINE HCL [Concomitant]
  10. DANTROLEN [Concomitant]
  11. PROTONIX [Concomitant]
  12. METOCLOPRAMIDE [Suspect]
     Indication: IMPAIRED GASTRIC EMPTYING
     Dosage: 10 MG;BID;PO
     Route: 048
     Dates: start: 20070101, end: 20090801
  13. METOCLOPRAMIDE [Suspect]
     Indication: GASTROOESOPHAGEAL REFLUX DISEASE
     Dosage: 10 MG;BID;PO
     Route: 048
     Dates: start: 20070101, end: 20090801
  14. METOCLOPRAMIDE [Suspect]
     Indication: GASTRIC DISORDER
     Dosage: 10 MG;BID;PO
     Route: 048
     Dates: start: 20070101, end: 20090801
  15. VIAGRA [Concomitant]
  16. CALCIUM ACETATE [Concomitant]
  17. FLUOXETINE [Concomitant]
  18. ROPINIROLE [Concomitant]
  19. SIMVASTATIN [Concomitant]
  20. BENZTROPINE MESYLATE [Concomitant]
  21. CARVEDILOL [Concomitant]
  22. OMEPRAZOLE [Concomitant]
  23. GLYCOTROL [Concomitant]
  24. CELEBREX [Concomitant]
  25. NEURONTIN [Concomitant]
  26. COREG [Concomitant]
  27. NORVASC [Concomitant]
  28. KAYEXALATE [Concomitant]
  29. PROBENACID [Concomitant]
  30. ZESTRIL [Concomitant]
  31. LEVOTHYROXINE SODIUM [Concomitant]
  32. ISOSORBIDE DINITRATE [Concomitant]
  33. ALLOPURINOL [Concomitant]
  34. GABAPENTIN [Concomitant]
  35. HYDRALAZINE HCL [Concomitant]
  36. LANTUS [Concomitant]
  37. LOSARTAN POTASSIUM [Concomitant]
  38. METFORMIN HCL [Concomitant]
  39. GLUCAGON [Concomitant]
  40. CEFEPIME [Concomitant]
  41. NIFEDIPINE [Concomitant]
  42. LEVAQUIN [Concomitant]
  43. COREG [Concomitant]
  44. TRIAMTERENE AND HYDROCHLOROTHIAZIDE [Concomitant]
  45. REGULAR INSULIN [Concomitant]
  46. TRAMADOL HCL [Concomitant]
  47. ASPIRIN [Concomitant]
  48. BICARBONATE [Concomitant]

REACTIONS (122)
  - INJURY [None]
  - MUSCLE TWITCHING [None]
  - AGITATION [None]
  - HALLUCINATION [None]
  - IDIOSYNCRATIC DRUG REACTION [None]
  - DIABETES MELLITUS INADEQUATE CONTROL [None]
  - APATHY [None]
  - DIPLOPIA [None]
  - NAUSEA [None]
  - OEDEMA [None]
  - TONIC CLONIC MOVEMENTS [None]
  - SLEEP TALKING [None]
  - MUSCULAR WEAKNESS [None]
  - METABOLIC ACIDOSIS [None]
  - ERECTILE DYSFUNCTION [None]
  - WEIGHT DECREASED [None]
  - RENAL FAILURE ACUTE [None]
  - POST-TRAUMATIC STRESS DISORDER [None]
  - VIITH NERVE PARALYSIS [None]
  - CHOKING [None]
  - GOUT [None]
  - ANGER [None]
  - HEART RATE IRREGULAR [None]
  - APHASIA [None]
  - PNEUMONIA ASPIRATION [None]
  - INCOHERENT [None]
  - PROTEINURIA [None]
  - TREATMENT NONCOMPLIANCE [None]
  - VOMITING [None]
  - COUGH [None]
  - NOCTURIA [None]
  - IRRITABILITY [None]
  - COGNITIVE DISORDER [None]
  - DEHYDRATION [None]
  - SINUS TACHYCARDIA [None]
  - GAIT DISTURBANCE [None]
  - GASTROOESOPHAGEAL REFLUX DISEASE [None]
  - REGURGITATION [None]
  - DEPRESSION [None]
  - FATIGUE [None]
  - ANAEMIA [None]
  - UNRESPONSIVE TO STIMULI [None]
  - WHEEZING [None]
  - SLEEP DISORDER [None]
  - NEUROLEPTIC MALIGNANT SYNDROME [None]
  - URINARY TRACT INFECTION [None]
  - SYNCOPE [None]
  - FRUSTRATION [None]
  - TOXICITY TO VARIOUS AGENTS [None]
  - ASTHENIA [None]
  - HYPERSOMNIA [None]
  - PALPITATIONS [None]
  - DIZZINESS [None]
  - ABDOMINAL PAIN LOWER [None]
  - HYPOGLYCAEMIA [None]
  - RETCHING [None]
  - EYELID PTOSIS [None]
  - TOXIC ENCEPHALOPATHY [None]
  - DISORIENTATION [None]
  - CHEST DISCOMFORT [None]
  - ABDOMINAL DISTENSION [None]
  - FACIAL PARESIS [None]
  - HYPERLIPIDAEMIA [None]
  - SLEEP APNOEA SYNDROME [None]
  - URAEMIC ENCEPHALOPATHY [None]
  - BALANCE DISORDER [None]
  - WEIGHT INCREASED [None]
  - HYPOAESTHESIA [None]
  - RESPIRATORY FAILURE [None]
  - MENTAL STATUS CHANGES [None]
  - EXTRAPYRAMIDAL DISORDER [None]
  - INCONTINENCE [None]
  - MYOCLONUS [None]
  - HYPERTENSION [None]
  - DECREASED APPETITE [None]
  - DYSPNOEA [None]
  - LETHARGY [None]
  - EYE PAIN [None]
  - DYSARTHRIA [None]
  - NEPHROPATHY [None]
  - DERMATITIS ALLERGIC [None]
  - AGGRESSION [None]
  - SNORING [None]
  - RESTLESS LEGS SYNDROME [None]
  - CEREBROVASCULAR ACCIDENT [None]
  - HYPERKALAEMIA [None]
  - CONFUSIONAL STATE [None]
  - DYSPHAGIA [None]
  - LUNG DISORDER [None]
  - CONTRAST MEDIA REACTION [None]
  - CHEST PAIN [None]
  - DYSPEPSIA [None]
  - TARDIVE DYSKINESIA [None]
  - EMOTIONAL DISORDER [None]
  - ANHEDONIA [None]
  - OVERDOSE [None]
  - HYPERPHOSPHATAEMIA [None]
  - ATAXIA [None]
  - DIABETIC NEUROPATHY [None]
  - DIABETIC RETINOPATHY [None]
  - FLANK PAIN [None]
  - TYPE 1 DIABETES MELLITUS [None]
  - CLAUSTROPHOBIA [None]
  - METABOLIC ENCEPHALOPATHY [None]
  - HYPOXIC-ISCHAEMIC ENCEPHALOPATHY [None]
  - SOMNOLENCE [None]
  - TUBULOINTERSTITIAL NEPHRITIS [None]
  - LUNG INFILTRATION [None]
  - NAIL DISORDER [None]
  - INCORRECT DRUG ADMINISTRATION DURATION [None]
  - DYSTONIA [None]
  - BENIGN PROSTATIC HYPERPLASIA [None]
  - MALAISE [None]
  - DYSPHORIA [None]
  - SOCIAL AVOIDANT BEHAVIOUR [None]
  - HYPOPHAGIA [None]
  - IMPAIRED GASTRIC EMPTYING [None]
  - PSYCHOTIC DISORDER [None]
  - TREMOR [None]
  - REFUSAL OF TREATMENT BY PATIENT [None]
  - OBESITY [None]
  - ARRHYTHMIA [None]
